FAERS Safety Report 8984732 (Version 1)
Quarter: 2012Q4

REPORT INFORMATION
  Report Type: Spontaneous
  Country: DE (occurrence: None)
  Receive Date: 20121217
  Receipt Date: 20121217
  Transmission Date: 20130627
  Serious: Yes (Hospitalization)
  Sender: FDA-Public Use
  Company Number: IMP_06105_2012

PATIENT
  Age: 15 Year
  Sex: Male
  Weight: 70 kg

DRUGS (1)
  1. BACLOFEN [Suspect]
     Indication: PRODUCT USED FOR UNKNOWN INDICATION
     Dosage: [Potential dose ]
     Route: 048

REACTIONS (16)
  - Coma [None]
  - Nausea [None]
  - Bradypnoea [None]
  - Oxygen saturation decreased [None]
  - Cyanosis [None]
  - Heart rate decreased [None]
  - Blood pressure diastolic decreased [None]
  - Grand mal convulsion [None]
  - Sinus bradycardia [None]
  - Status epilepticus [None]
  - Rhabdomyolysis [None]
  - Lagophthalmos [None]
  - Dizziness [None]
  - Aggression [None]
  - Incorrect dose administered [None]
  - Self-medication [None]
